FAERS Safety Report 4447541-9 (Version None)
Quarter: 2004Q3

REPORT INFORMATION
  Report Type: 
  Country: None (occurrence: None)
  Receive Date: 20040823
  Receipt Date: 20040605
  Transmission Date: 20050211
  Serious: No
  Sender: FDA-Public Use
  Company Number: PHEH2004US06223

PATIENT
  Sex: Female

DRUGS (1)
  1. ZELNORM [Suspect]
     Dosage: ORAL
     Route: 048
     Dates: start: 20040101

REACTIONS (5)
  - ALOPECIA [None]
  - ASTHENIA [None]
  - FACE OEDEMA [None]
  - FATIGUE [None]
  - HEADACHE [None]
